FAERS Safety Report 8506355-0 (Version None)
Quarter: 2012Q3

REPORT INFORMATION
  Report Type: 
  Country: None (occurrence: None)
  Receive Date: 20120706
  Receipt Date: 20120706
  Transmission Date: 20120928
  Serious: Yes (Hospitalization)
  Sender: FDA-Public Use
  Company Number: None

PATIENT
  Sex: Male

DRUGS (1)
  1. PEGASYS 180MCG GENENTECH [Suspect]
     Indication: HEPATITIS C
     Dosage: 180MCG /EVERY WEEK/SUBCUTANEOUSLY

REACTIONS (4)
  - PANCREATITIS [None]
  - BLOOD PRESSURE ABNORMAL [None]
  - ABDOMINAL PAIN UPPER [None]
  - HAEMATOCHEZIA [None]
